FAERS Safety Report 8825091 (Version 3)
Quarter: 2012Q4

REPORT INFORMATION
  Report Type: 
  Country: JP (occurrence: JP)
  Receive Date: 20121004
  Receipt Date: 20121121
  Transmission Date: 20130627
  Serious: Yes (Hospitalization)
  Sender: FDA-Public Use
  Company Number: JP-ELI_LILLY_AND_COMPANY-JP201209005526

PATIENT
  Sex: Male
  Weight: 59.2 kg

DRUGS (3)
  1. ZYPREXA [Suspect]
     Indication: SCHIZOPHRENIA
     Dosage: 15 mg, qd
     Route: 048
  2. BIBITTOACE [Concomitant]
     Indication: INSOMNIA
     Dosage: 1 mg, qd
     Route: 048
  3. SENNOSIDE [Concomitant]
     Indication: CONSTIPATION
     Dosage: 24 mg, qd
     Route: 048

REACTIONS (2)
  - Neuropathy peripheral [Recovered/Resolved with Sequelae]
  - Fall [Recovered/Resolved with Sequelae]
